FAERS Safety Report 14063338 (Version 1)
Quarter: 2017Q4

REPORT INFORMATION
  Report Type: Spontaneous
  Country: US (occurrence: US)
  Receive Date: 20171009
  Receipt Date: 20171009
  Transmission Date: 20180321
  Serious: Yes (Other)
  Sender: FDA-Public Use
  Company Number: US-SUNOVION-2017SUN004371

PATIENT
  Sex: Female

DRUGS (1)
  1. LATUDA [Suspect]
     Active Substance: LURASIDONE HYDROCHLORIDE
     Indication: BIPOLAR DISORDER
     Dosage: UNK
     Route: 048
     Dates: start: 2012

REACTIONS (7)
  - Feeling abnormal [Unknown]
  - Suicidal ideation [Unknown]
  - Mania [Unknown]
  - Depressed mood [Unknown]
  - Insomnia [Unknown]
  - Emotional poverty [Unknown]
  - Mental disorder [Unknown]
